FAERS Safety Report 7463796-0 (Version None)
Quarter: 2011Q2

REPORT INFORMATION
  Report Type: 
  Country: None (occurrence: None)
  Receive Date: 20110506
  Receipt Date: 20110427
  Transmission Date: 20111010
  Serious: Yes (Other)
  Sender: FDA-Public Use
  Company Number: PHHY2011BR35692

PATIENT
  Sex: Male

DRUGS (3)
  1. PREDNISONE [Concomitant]
     Dosage: 12 MG, UNK
  2. FORADIL [Concomitant]
     Indication: EMPHYSEMA
     Dosage: UNK
  3. FORMOTEROL FUMARATE [Suspect]
     Indication: EMPHYSEMA

REACTIONS (3)
  - CANDIDIASIS [None]
  - OESOPHAGITIS [None]
  - DYSPNOEA [None]
